FAERS Safety Report 14631772 (Version 1)
Quarter: 2018Q1

REPORT INFORMATION
  Report Type: Spontaneous
  Country: US (occurrence: US)
  Receive Date: 20180313
  Receipt Date: 20180313
  Transmission Date: 20180509
  Serious: Yes (Other)
  Sender: FDA-Public Use
  Company Number: US-BAYER-2018-044095

PATIENT
  Age: 81 Year
  Sex: Male
  Weight: 92.97 kg

DRUGS (1)
  1. BAYER LOW DOSE [Suspect]
     Active Substance: ASPIRIN
     Indication: ANTICOAGULANT THERAPY
     Dosage: 1 DF, QD
     Route: 048

REACTIONS (3)
  - Myocardial infarction [Unknown]
  - Product use in unapproved indication [None]
  - Off label use [None]
